FAERS Safety Report 18253842 (Version 1)
Quarter: 2020Q3

REPORT INFORMATION
  Report Type: Spontaneous
  Country: NL (occurrence: NL)
  Receive Date: 20200910
  Receipt Date: 20200910
  Transmission Date: 20201103
  Serious: Yes (Other)
  Sender: FDA-Public Use
  Company Number: NL-MYLANLABS-2019M1013981

PATIENT
  Age: 90 Year
  Sex: Male
  Weight: 80 kg

DRUGS (8)
  1. RANITIDINE. [Suspect]
     Active Substance: RANITIDINE
     Indication: PROPHYLAXIS
     Dosage: 300 MILLIGRAM,2X 1 STUK,12 MINUTES
     Route: 048
     Dates: start: 20180608, end: 20180715
  2. FUROSEMIDE. [Concomitant]
     Active Substance: FUROSEMIDE
     Dosage: 40 MILLIGRAM, TOTAL,1 X 1
     Route: 065
  3. FOLIUMZUUR [Concomitant]
     Active Substance: FOLIC ACID
     Dosage: 1 DOSAGE FORM, QD
  4. FOLIUMZUUR [Concomitant]
     Active Substance: FOLIC ACID
     Dosage: 0.5 MILLIGRAM, QD (1 X 1)
  5. CHOLECALCIFEROL [Concomitant]
     Active Substance: CHOLECALCIFEROL
     Dosage: 800 INTERNATIONAL UNIT, QD,1 X 1
  6. GASTRICUM [Concomitant]
     Dosage: 1 DOSAGE FORM, QD,1 X 1
  7. ACETYLSALICYLZUUR [Concomitant]
     Active Substance: ASPIRIN
     Dosage: 80 GRAM, QD,1 X 1
  8. GINKGO BILOBA [Concomitant]
     Active Substance: GINKGO
     Dosage: 1 DOSAGE FORM, BID (2 X 1)

REACTIONS (2)
  - Hallucination [Recovered/Resolved]
  - Hypersexuality [Recovered/Resolved]

NARRATIVE: CASE EVENT DATE: 201806
